FAERS Safety Report 4275528-8 (Version None)
Quarter: 2004Q1

REPORT INFORMATION
  Report Type: 
  Country: None (occurrence: None)
  Receive Date: 20040121
  Receipt Date: 20040109
  Transmission Date: 20041129
  Serious: Yes (Death, Hospitalization)
  Sender: FDA-Public Use
  Company Number: FR-GLAXOSMITHKLINE-B0319503A

PATIENT
  Age: 79 Year
  Sex: Male

DRUGS (11)
  1. DEROXAT [Suspect]
     Indication: DEPRESSION
     Dosage: 10MG PER DAY
     Route: 048
     Dates: start: 20020701, end: 20031221
  2. MUCOMYST [Suspect]
     Indication: RESPIRATORY DISORDER
     Route: 048
     Dates: start: 20031218, end: 20031219
  3. KARDEGIC [Suspect]
     Indication: CARDIOVASCULAR DISORDER
     Route: 048
     Dates: start: 20030901, end: 20031220
  4. VIRLIX [Suspect]
     Indication: RASH MACULO-PAPULAR
     Route: 048
     Dates: start: 20031218, end: 20031219
  5. ACETAMINOPHEN [Suspect]
     Indication: RESPIRATORY DISORDER
     Route: 048
     Dates: start: 20031218, end: 20031219
  6. SINTROM [Suspect]
     Indication: CARDIOVASCULAR DISORDER
     Route: 048
     Dates: start: 20020801, end: 20031220
  7. VENTOLIN [Concomitant]
     Indication: RESPIRATORY DISORDER
     Dates: start: 20031218
  8. AMYCOR [Concomitant]
     Indication: RASH MACULO-PAPULAR
     Dates: start: 20031218
  9. LOXEN 20 (NICARDIPINE) [Concomitant]
     Indication: CARDIOVASCULAR DISORDER
  10. CARDENSIEL [Concomitant]
     Indication: CARDIOVASCULAR DISORDER
  11. HEPARIN [Concomitant]
     Dates: start: 20031201

REACTIONS (13)
  - DEATH [None]
  - DERMATITIS BULLOUS [None]
  - HERPES VIRUS INFECTION [None]
  - HYPERTHERMIA [None]
  - LEUKOPENIA [None]
  - LYMPHOPENIA [None]
  - MUCOUS MEMBRANE DISORDER [None]
  - PRURITUS [None]
  - RALES [None]
  - RASH MACULO-PAPULAR [None]
  - RENAL FAILURE [None]
  - SKIN DISORDER [None]
  - TOXIC EPIDERMAL NECROLYSIS [None]
